FAERS Safety Report 16249287 (Version 2)
Quarter: 2019Q2

REPORT INFORMATION
  Report Type: Report from Study
  Country: IT (occurrence: IT)
  Receive Date: 20190429
  Receipt Date: 20190502
  Transmission Date: 20190711
  Serious: Yes (Hospitalization)
  Sender: FDA-Public Use
  Company Number: IT-TEVA-2019-IT-1042187

PATIENT
  Age: 9 Year
  Sex: Male
  Weight: 37 kg

DRUGS (17)
  1. ARACYTIN [Suspect]
     Active Substance: CYTARABINE
     Indication: ACUTE LYMPHOCYTIC LEUKAEMIA
     Route: 042
     Dates: start: 20180910, end: 20181018
  2. ANTITHROMBIN III HUMAN [Concomitant]
     Active Substance: ANTITHROMBIN III HUMAN
     Dates: start: 20180913, end: 20180917
  3. ENDOXAN BAXTER [Concomitant]
     Active Substance: CYCLOPHOSPHAMIDE
     Indication: ACUTE LYMPHOCYTIC LEUKAEMIA
     Route: 042
     Dates: start: 20180906, end: 20181020
  4. MYCOSTATIN [Concomitant]
     Active Substance: NYSTATIN
     Route: 048
     Dates: start: 20180720
  5. PURINETHOL [Suspect]
     Active Substance: MERCAPTOPURINE
     Indication: ACUTE LYMPHOCYTIC LEUKAEMIA
     Dosage: 100 MILLIGRAM DAILY;
     Route: 042
     Dates: start: 20180910
  6. TRIMETON [Concomitant]
     Active Substance: CHLORPHENIRAMINE MALEATE
     Route: 042
     Dates: start: 20180917, end: 20180917
  7. IG VENA [Concomitant]
     Active Substance: HUMAN IMMUNOGLOBULIN G
     Dates: start: 20180917, end: 20180917
  8. DILATREND [Concomitant]
     Active Substance: CARVEDILOL
     Dosage: 1.56 MILLIGRAM DAILY;
     Route: 048
  9. RANITIDINE. [Concomitant]
     Active Substance: RANITIDINE
     Dosage: 150 MILLIGRAM DAILY;
     Route: 048
  10. URBASON [Concomitant]
     Active Substance: METHYLPREDNISOLONE
     Route: 038
     Dates: start: 20180927, end: 20181015
  11. DEURSIL [Concomitant]
     Active Substance: URSODIOL
     Dosage: 900 MILLIGRAM DAILY;
     Route: 048
  12. MYELOSTIM [Concomitant]
     Route: 058
     Dates: start: 20180917, end: 20180918
  13. METHOTREXATE. [Suspect]
     Active Substance: METHOTREXATE
     Indication: ACUTE LYMPHOCYTIC LEUKAEMIA
     Route: 038
     Dates: start: 20180927, end: 20181015
  14. AUGMENTIN [Concomitant]
     Active Substance: AMOXICILLIN\CLAVULANATE POTASSIUM
     Dosage: 16 ML DAILY;
     Dates: start: 20180913, end: 20180927
  15. UROMITEXAN [Concomitant]
     Active Substance: MESNA
     Indication: ACUTE LYMPHOCYTIC LEUKAEMIA
     Route: 042
     Dates: start: 20180906, end: 20181020
  16. ZOFRAN [Concomitant]
     Active Substance: ONDANSETRON HYDROCHLORIDE
     Indication: PROPHYLAXIS OF NAUSEA AND VOMITING
     Dosage: 8 MILLIGRAM DAILY;
     Route: 042
     Dates: start: 20180927, end: 20180930
  17. BACTRIM [Concomitant]
     Active Substance: SULFAMETHOXAZOLE\TRIMETHOPRIM
     Route: 048

REACTIONS (2)
  - Migraine [Recovering/Resolving]
  - Vomiting [Recovering/Resolving]

NARRATIVE: CASE EVENT DATE: 20180930
